FAERS Safety Report 11339228 (Version 1)
Quarter: 2015Q3

REPORT INFORMATION
  Report Type: Spontaneous
  Country: US (occurrence: US)
  Receive Date: 20150803
  Receipt Date: 20150803
  Transmission Date: 20151125
  Serious: No
  Sender: FDA-Public Use
  Company Number: US-ELI_LILLY_AND_COMPANY-US200908002910

PATIENT
  Age: 7 Year
  Sex: Male

DRUGS (2)
  1. COMPAZINE [Concomitant]
     Active Substance: PROCHLORPERAZINE MALEATE
     Indication: IMPULSE-CONTROL DISORDER
     Dosage: 10 MG, 2/D
     Route: 065
     Dates: start: 20070717, end: 20090716
  2. STRATTERA [Suspect]
     Active Substance: ATOMOXETINE HYDROCHLORIDE
     Dosage: 40 MG, UNKNOWN
     Route: 065
     Dates: start: 20090427

REACTIONS (1)
  - Excessive eye blinking [Unknown]

NARRATIVE: CASE EVENT DATE: 20090802
